FAERS Safety Report 18338411 (Version 2)
Quarter: 2020Q4

REPORT INFORMATION
  Report Type: Report from Study
  Country: US (occurrence: US)
  Receive Date: 20201002
  Receipt Date: 20201008
  Transmission Date: 20210113
  Serious: Yes (Hospitalization, Other)
  Sender: FDA-Public Use
  Company Number: US-SA-2018SA180461

PATIENT

DRUGS (1)
  1. ALEMTUZUMAB [Suspect]
     Active Substance: ALEMTUZUMAB
     Indication: MULTIPLE SCLEROSIS
     Dosage: 12 MG, QD
     Route: 041
     Dates: start: 20180507, end: 20180511

REACTIONS (21)
  - Clostridium difficile colitis [Unknown]
  - Dyspnoea [Unknown]
  - Arthritis [Unknown]
  - Muscle spasms [Recovered/Resolved]
  - Nasopharyngitis [Unknown]
  - Intervertebral disc protrusion [Unknown]
  - Hypoaesthesia [Not Recovered/Not Resolved]
  - Unevaluable event [Unknown]
  - Bronchitis [Unknown]
  - Diplopia [Not Recovered/Not Resolved]
  - Pain [Not Recovered/Not Resolved]
  - Neuropathy peripheral [Not Recovered/Not Resolved]
  - Respiratory disorder [Unknown]
  - Nerve injury [Not Recovered/Not Resolved]
  - Immunodeficiency [Not Recovered/Not Resolved]
  - Pyrexia [Not Recovered/Not Resolved]
  - Dyspnoea [Recovered/Resolved]
  - Drug hypersensitivity [Unknown]
  - CD4 lymphocytes decreased [Unknown]
  - Influenza like illness [Not Recovered/Not Resolved]
  - Infusion related reaction [Unknown]

NARRATIVE: CASE EVENT DATE: 2018
